FAERS Safety Report 7443790-6 (Version None)
Quarter: 2011Q2

REPORT INFORMATION
  Report Type: 
  Country: None (occurrence: None)
  Receive Date: 20110428
  Receipt Date: 20110425
  Transmission Date: 20111010
  Serious: Yes (Hospitalization)
  Sender: FDA-Public Use
  Company Number: US-MERCK-1104USA03683

PATIENT
  Sex: Female

DRUGS (2)
  1. INVANZ [Suspect]
     Route: 042
  2. VANCOMYCIN [Concomitant]
     Route: 065

REACTIONS (1)
  - CLOSTRIDIAL INFECTION [None]
